FAERS Safety Report 5746653-7 (Version None)
Quarter: 2008Q2

REPORT INFORMATION
  Report Type: 
  Country: None (occurrence: None)
  Receive Date: 20080522
  Receipt Date: 20080514
  Transmission Date: 20081010
  Serious: Yes (Other)
  Sender: FDA-Public Use
  Company Number: PHHY2008JP08264

PATIENT
  Age: 16 Year
  Sex: Female

DRUGS (1)
  1. SANDOSTATIN [Suspect]
     Dosage: 50 UG, UNK

REACTIONS (2)
  - BLOOD GROWTH HORMONE INCREASED [None]
  - PITUITARY TUMOUR [None]
